FAERS Safety Report 7863181-3 (Version None)
Quarter: 2011Q4

REPORT INFORMATION
  Report Type: 
  Country: None (occurrence: None)
  Receive Date: 20111027
  Receipt Date: 20101129
  Transmission Date: 20120403
  Serious: No
  Sender: FDA-Public Use
  Company Number: US-AMGEN-USASP2010006851

PATIENT
  Age: 30 Year
  Sex: Female

DRUGS (5)
  1. NAPROXIN                           /00256201/ [Concomitant]
     Dosage: UNK
  2. HUMIRA [Concomitant]
     Dosage: 40 MG, Q2WK
     Dates: start: 20100701, end: 20101007
  3. METHOTREXATE [Concomitant]
     Dosage: UNK
     Dates: start: 19950101
  4. ENBREL [Suspect]
     Indication: JUVENILE ARTHRITIS
     Dosage: UNK
     Dates: start: 19990101
  5. ENBREL [Suspect]
     Dosage: UNK
     Dates: start: 20100101

REACTIONS (2)
  - JUVENILE ARTHRITIS [None]
  - DRUG INEFFECTIVE [None]
